FAERS Safety Report 7378645 (Version 2)
Quarter: 2013Q4

REPORT INFORMATION
  Report Type: Spontaneous
  Country: US (occurrence: US)
  Receive Date: 20100506
  Receipt Date: 20131226
  Transmission Date: 20140711
  Serious: Yes (Hospitalization)
  Sender: FDA-Public Use
  Company Number: US-JNJFOC-20100407974

PATIENT
  Age: 48 Year
  Sex: Female
  Weight: 77.11 kg

DRUGS (4)
  1. DURAGESIC [Suspect]
     Indication: PAIN
     Dosage: 100UG/HR AND 50 UG/HR
     Route: 062
     Dates: start: 201001
  2. DURAGESIC [Suspect]
     Indication: PAIN
     Route: 062
     Dates: start: 2006, end: 201001
  3. UNSPECIFIED BLOOD PRESSURE MEDS [Concomitant]
     Indication: PRODUCT USED FOR UNKNOWN INDICATION
     Route: 065
  4. ROXICODONE [Concomitant]
     Indication: BREAKTHROUGH PAIN
     Route: 065
     Dates: start: 2006

REACTIONS (7)
  - Pre-existing disease [Not Recovered/Not Resolved]
  - Drug administered at inappropriate site [Recovered/Resolved]
  - Pain [Unknown]
  - Nausea [Not Recovered/Not Resolved]
  - Wrong technique in drug usage process [Unknown]
  - Drug administered at inappropriate site [Recovered/Resolved]
  - Product quality issue [Unknown]
